FAERS Safety Report 4960203-4 (Version None)
Quarter: 2006Q1

REPORT INFORMATION
  Report Type: 
  Country: None (occurrence: None)
  Receive Date: 20060328
  Receipt Date: 20060313
  Transmission Date: 20060701
  Serious: Yes (Other)
  Sender: FDA-Public Use
  Company Number: 2006035279

PATIENT
  Age: 70 Year
  Sex: Male
  Weight: 115.2136 kg

DRUGS (2)
  1. VIAGRA [Suspect]
     Indication: ERECTILE DYSFUNCTION
     Dates: start: 20000101, end: 20000101
  2. SYNTHROID [Concomitant]

REACTIONS (3)
  - CARDIAC STRESS TEST ABNORMAL [None]
  - DRUG INEFFECTIVE [None]
  - TRIPLE VESSEL BYPASS GRAFT [None]
